FAERS Safety Report 23135130 (Version 1)
Quarter: 2023Q4

REPORT INFORMATION
  Report Type: Spontaneous
  Country: US (occurrence: None)
  Receive Date: 20231101
  Receipt Date: 20231101
  Transmission Date: 20240110
  Serious: Yes (Other)
  Sender: FDA-Public Use
  Company Number: None

PATIENT
  Age: 18 Year
  Sex: Male
  Weight: 113.6 kg

DRUGS (16)
  1. DUPIXENT [Suspect]
     Active Substance: DUPILUMAB
     Indication: Asthma
     Dosage: OTHER FREQUENCY : EVERY 2 WEEKS;?
     Route: 058
     Dates: start: 20210914
  2. ALBUTEROL SULFATE [Concomitant]
     Active Substance: ALBUTEROL SULFATE
  3. Breo 200mcg/25mcg [Concomitant]
  4. AJOVY [Concomitant]
     Active Substance: FREMANEZUMAB-VFRM
  5. CETIRIZINE [Concomitant]
     Active Substance: CETIRIZINE HYDROCHLORIDE
  6. ciclesonide nasal spray [Concomitant]
  7. CLONIDINE [Concomitant]
     Active Substance: CLONIDINE
  8. ESOMEPRAZOLE [Concomitant]
     Active Substance: ESOMEPRAZOLE
  9. BUSPAR [Concomitant]
     Active Substance: BUSPIRONE HYDROCHLORIDE
  10. FLUOXETINE [Concomitant]
     Active Substance: FLUOXETINE HYDROCHLORIDE
  11. MELOXICAM [Concomitant]
     Active Substance: MELOXICAM
  12. namenda 5mg [Concomitant]
  13. prochlorperazine 5mg [Concomitant]
  14. riboflavin 400mg [Concomitant]
  15. rizatriptan 10mg ODT [Concomitant]
  16. scopalamine patch 1mg/72hr [Concomitant]

REACTIONS (2)
  - Bone infarction [None]
  - Hernia [None]

NARRATIVE: CASE EVENT DATE: 20230929
